FAERS Safety Report 4293456-9 (Version None)
Quarter: 2004Q1

REPORT INFORMATION
  Report Type: 
  Country: None (occurrence: None)
  Receive Date: 20040126
  Receipt Date: 20031118
  Transmission Date: 20041129
  Serious: No
  Sender: FDA-Public Use
  Company Number: USA031151839

PATIENT
  Age: 71 Year
  Sex: Female
  Weight: 68 kg

DRUGS (4)
  1. FORTEO [Suspect]
     Indication: OSTEOPOROSIS
     Dates: start: 20030201, end: 20031001
  2. PREDNISONE [Concomitant]
  3. ATENOLOL [Concomitant]
  4. TRAZODONE HCL [Concomitant]

REACTIONS (5)
  - DIZZINESS [None]
  - FEAR OF FALLING [None]
  - FEELING ABNORMAL [None]
  - GAIT DISTURBANCE [None]
  - WALKING AID USER [None]
